FAERS Safety Report 25332238 (Version 1)
Quarter: 2025Q2

REPORT INFORMATION
  Report Type: Spontaneous
  Country: JP (occurrence: JP)
  Receive Date: 20250519
  Receipt Date: 20250519
  Transmission Date: 20250716
  Serious: Yes (Other)
  Sender: PFIZER
  Company Number: JP-PFIZER INC-202500101825

PATIENT
  Age: 10 Year
  Sex: Female

DRUGS (1)
  1. VIBRAMYCIN [Suspect]
     Active Substance: DOXYCYCLINE
     Indication: Pertussis
     Route: 048

REACTIONS (5)
  - Urinary retention [Unknown]
  - Pollakiuria [Unknown]
  - Condition aggravated [Unknown]
  - Urinary tract infection [Unknown]
  - Off label use [Unknown]
